FAERS Safety Report 5884125-X (Version None)
Quarter: 2008Q3

REPORT INFORMATION
  Report Type: 
  Country: None (occurrence: None)
  Receive Date: 20080915
  Receipt Date: 20080902
  Transmission Date: 20090109
  Serious: Yes (Hospitalization)
  Sender: FDA-Public Use
  Company Number: PHEH1995US01959

PATIENT
  Sex: Male
  Weight: 60 kg

DRUGS (11)
  1. NEORAL [Suspect]
     Route: 048
     Dates: start: 19950521
  2. SOLU-MEDROL [Concomitant]
     Route: 065
  3. PREDNISONE [Concomitant]
     Route: 065
  4. LASIX [Concomitant]
     Route: 065
  5. IMURAN [Concomitant]
     Route: 065
  6. PEPCID [Concomitant]
     Route: 065
  7. ZOVIRAX [Concomitant]
     Route: 065
  8. BACTRIM DS [Concomitant]
     Route: 048
  9. MORPHINE SULFATE [Concomitant]
     Dosage: 1-4 MG
     Route: 065
  10. TICAR (TICARCILLIN DISODIUM) [Concomitant]
     Route: 065
  11. ANCEF [Concomitant]
     Route: 065

REACTIONS (2)
  - ABSCESS [None]
  - ARTERIAL THROMBOSIS [None]
